FAERS Safety Report 4760155-6 (Version None)
Quarter: 2005Q3

REPORT INFORMATION
  Report Type: 
  Country: None (occurrence: None)
  Receive Date: 20050902
  Receipt Date: 20050824
  Transmission Date: 20060218
  Serious: Yes (Other)
  Sender: FDA-Public Use
  Company Number: IT-ABBOTT-05P-083-0309180-00

PATIENT
  Age: 38 Year
  Sex: Female

DRUGS (1)
  1. CYCLOSPORINE [Suspect]
     Indication: PSORIASIS
     Dates: start: 19970101, end: 20010101

REACTIONS (1)
  - WALDENSTROM'S MACROGLOBULINAEMIA [None]
